FAERS Safety Report 8478017-X (Version None)
Quarter: 2012Q2

REPORT INFORMATION
  Report Type: 
  Country: None (occurrence: None)
  Receive Date: 20120629
  Receipt Date: 20120620
  Transmission Date: 20120825
  Serious: Yes (Hospitalization)
  Sender: FDA-Public Use
  Company Number: MX-ASTRAZENECA-2012SE42026

PATIENT
  Age: 14 Year
  Sex: Female
  Weight: 55 kg

DRUGS (3)
  1. SEROQUEL [Suspect]
     Indication: POST-TRAUMATIC STRESS DISORDER
     Route: 048
     Dates: end: 20120618
  2. CLONAZEPAM [Concomitant]
     Indication: INSOMNIA
     Route: 048
     Dates: end: 20120618
  3. ESCITALOPRAM [Concomitant]
     Indication: ANTIDEPRESSANT THERAPY
     Route: 048
     Dates: end: 20120618

REACTIONS (6)
  - ALTERED STATE OF CONSCIOUSNESS [None]
  - NAUSEA [None]
  - ATAXIA [None]
  - ASTERIXIS [None]
  - DIZZINESS [None]
  - INTENTIONAL OVERDOSE [None]
